FAERS Safety Report 16445853 (Version 1)
Quarter: 2019Q2

REPORT INFORMATION
  Report Type: Spontaneous
  Country: US (occurrence: US)
  Receive Date: 20190618
  Receipt Date: 20190618
  Transmission Date: 20190711
  Serious: No
  Sender: FDA-Public Use
  Company Number: US-TEVA-2019-US-1060749

PATIENT
  Sex: Female

DRUGS (1)
  1. PROPRANOLOL [Suspect]
     Active Substance: PROPRANOLOL HYDROCHLORIDE
     Indication: TACHYCARDIA
     Dosage: ONE AND A HALF TABLETS IN THE MORNING AND ONE AND A HALF TABLETS AT NIGHT
     Route: 065
     Dates: start: 201904

REACTIONS (2)
  - Alopecia [Unknown]
  - Product substitution issue [Unknown]

NARRATIVE: CASE EVENT DATE: 201905
